FAERS Safety Report 15189691 (Version 1)
Quarter: 2018Q3

REPORT INFORMATION
  Report Type: Spontaneous
  Country: DE (occurrence: DE)
  Receive Date: 20180724
  Receipt Date: 20180724
  Transmission Date: 20181010
  Serious: Yes (Death, Other)
  Sender: FDA-Public Use
  Company Number: DE-AUROBINDO-AUR-APL-2018-036869

PATIENT
  Age: 77 Year
  Sex: Male

DRUGS (1)
  1. BISOPROLOL [Suspect]
     Active Substance: BISOPROLOL
     Indication: PRODUCT USED FOR UNKNOWN INDICATION
     Dosage: FOR YEARS
     Route: 048

REACTIONS (8)
  - Diarrhoea [Unknown]
  - Eye pruritus [Unknown]
  - Headache [Unknown]
  - Lymphoma [Fatal]
  - Hypoaesthesia [Unknown]
  - Dizziness [Unknown]
  - Rash pruritic [Unknown]
  - Lacrimation increased [Unknown]
